FAERS Safety Report 26126039 (Version 1)
Quarter: 2025Q4

REPORT INFORMATION
  Report Type: Spontaneous
  Country: US (occurrence: None)
  Receive Date: 20251204
  Receipt Date: 20251204
  Transmission Date: 20260118
  Serious: Yes (Other)
  Sender: FDA-CTU
  Company Number: None

PATIENT
  Age: 69 Year
  Sex: Female
  Weight: 59.4 kg

DRUGS (2)
  1. SERMORELIN [Suspect]
     Active Substance: SERMORELIN
     Indication: Pain
     Dosage: OTHER FREQUENCY : 5 TIMES A WEEK BED;?
     Route: 058
     Dates: start: 20250627, end: 20250730
  2. SERMORELIN [Concomitant]
     Active Substance: SERMORELIN
     Dates: start: 20250627, end: 20250730

REACTIONS (7)
  - Erythema [None]
  - Pruritus [None]
  - Pain in extremity [None]
  - Discomfort [None]
  - Hypersensitivity [None]
  - Local reaction [None]
  - Injection related reaction [None]

NARRATIVE: CASE EVENT DATE: 20250627
